FAERS Safety Report 9095702 (Version 1)
Quarter: 2013Q1

REPORT INFORMATION
  Report Type: Spontaneous
  Country: CN (occurrence: None)
  Receive Date: 20130124
  Receipt Date: 20130124
  Transmission Date: 20140127
  Serious: Yes (Other)
  Sender: FDA-Public Use
  Company Number: DSA_62029_2013

PATIENT
  Sex: 0

DRUGS (2)
  1. FLUOROURACIL (FLUOROURACIL) [Suspect]
     Indication: COLORECTAL CANCER
  2. MITOMYCIN [Suspect]

REACTIONS (1)
  - Diabetes mellitus [None]
